FAERS Safety Report 4791241-2 (Version None)
Quarter: 2005Q4

REPORT INFORMATION
  Report Type: 
  Country: None (occurrence: None)
  Receive Date: 20051007
  Receipt Date: 20050713
  Transmission Date: 20060501
  Serious: No
  Sender: FDA-Public Use
  Company Number: US-BRISTOL-MYERS SQUIBB COMPANY-13035886

PATIENT
  Age: 71 Year
  Sex: Female

DRUGS (8)
  1. METAGLIP [Suspect]
     Dosage: DOSAGE FORM = GLIPIZIDE 5 MG/METFORMIN 500 MG
  2. PRINZIDE [Concomitant]
  3. ARAVA [Concomitant]
  4. KLOR-CON [Concomitant]
  5. ENBREL [Concomitant]
     Dosage: DOSAGE FORM = 50 MG PER ML
  6. AMITRIPTYLINE HCL [Concomitant]
  7. ZETIA [Concomitant]
  8. BETAMETHASONE [Concomitant]

REACTIONS (1)
  - BLOOD GLUCOSE INCREASED [None]
